FAERS Safety Report 12174973 (Version 1)
Quarter: 2016Q1

REPORT INFORMATION
  Report Type: Spontaneous
  Country: DE (occurrence: DE)
  Receive Date: 20160314
  Receipt Date: 20160314
  Transmission Date: 20160526
  Serious: Yes (Congenital Anomaly, Other)
  Sender: FDA-Public Use
  Company Number: DE-GLAXOSMITHKLINE-DE2016GSK032930

PATIENT
  Sex: Male
  Weight: 2.78 kg

DRUGS (7)
  1. ESTRIFAM [Concomitant]
     Active Substance: ESTRADIOL
     Indication: ASSISTED FERTILISATION
     Dosage: 2 MG, TID
     Route: 064
     Dates: start: 20141016, end: 20141202
  2. FOLIC ACID. [Concomitant]
     Active Substance: FOLIC ACID
     Indication: PROPHYLAXIS OF NEURAL TUBE DEFECT
     Route: 064
  3. LEVODOPA + BENSERAZIDE [Suspect]
     Active Substance: BENSERAZIDE\LEVODOPA
     Indication: PARKINSON^S DISEASE
     Dosage: UNK
     Route: 064
  4. ROPINIROLE. [Suspect]
     Active Substance: ROPINIROLE
     Indication: PARKINSON^S DISEASE
     Dosage: UNK
     Route: 064
     Dates: start: 20141016
  5. LEVODOPA + BENSERAZIDE [Suspect]
     Active Substance: BENSERAZIDE\LEVODOPA
     Dosage: UNK
     Route: 064
  6. ROPINIROLE. [Suspect]
     Active Substance: ROPINIROLE
     Dosage: UNK
     Dates: end: 20141126
  7. PROGESTAN [Concomitant]
     Active Substance: PROGESTERONE
     Indication: ASSISTED FERTILISATION
     Dosage: 200 MG, TID
     Route: 064

REACTIONS (3)
  - Foetal exposure during pregnancy [Unknown]
  - Haemangioma [Unknown]
  - Growth retardation [Unknown]
